FAERS Safety Report 9110743 (Version 1)
Quarter: 2013Q1

REPORT INFORMATION
  Report Type: Spontaneous
  Country: US (occurrence: US)
  Receive Date: 20130219
  Receipt Date: 20130219
  Transmission Date: 20140127
  Serious: No
  Sender: FDA-Public Use
  Company Number: US-BRISTOL-MYERS SQUIBB COMPANY-16714743

PATIENT
  Age: 48 Year
  Sex: Female
  Weight: 56.69 kg

DRUGS (2)
  1. ORENCIA [Suspect]
     Indication: RHEUMATOID ARTHRITIS
     Dosage: INF:6. LAST INF: 20JUN12. UNKNOWN-JAN12: 500MG, JAN12-ONGOIN:750MG
  2. HYDROCODONE + ACETAMINOPHEN [Concomitant]
     Dosage: 10/325 MGTAB, DOSE INCRESED TO 3/DAY.
     Route: 048

REACTIONS (3)
  - Pain [Unknown]
  - Joint swelling [Unknown]
  - Infusion site extravasation [Unknown]
